FAERS Safety Report 21756715 (Version 2)
Quarter: 2022Q4

REPORT INFORMATION
  Report Type: Spontaneous
  Country: TR (occurrence: None)
  Receive Date: 20221220
  Receipt Date: 20221226
  Transmission Date: 20230113
  Serious: Yes (Life-Threatening, Other)
  Sender: FDA-Public Use
  Company Number: 2022A404924

PATIENT
  Age: 72 Year
  Sex: Female

DRUGS (4)
  1. BYETTA [Suspect]
     Active Substance: EXENATIDE
     Indication: Blood glucose abnormal
     Dosage: 5 MCG
     Route: 065
     Dates: start: 202209
  2. BYETTA [Suspect]
     Active Substance: EXENATIDE
     Indication: Blood glucose abnormal
     Dosage: 10 MCG
     Route: 065
  3. BYETTA [Suspect]
     Active Substance: EXENATIDE
     Indication: Blood glucose abnormal
     Route: 065
     Dates: end: 20221208
  4. GASTRIC PROTECTOR [Concomitant]

REACTIONS (6)
  - Blood pressure abnormal [Recovering/Resolving]
  - Arrhythmia [Not Recovered/Not Resolved]
  - Urinary incontinence [Recovering/Resolving]
  - Body temperature decreased [Recovering/Resolving]
  - Dysstasia [Unknown]
  - Blood glucose decreased [Not Recovered/Not Resolved]
